FAERS Safety Report 12125447 (Version 1)
Quarter: 2016Q1

REPORT INFORMATION
  Report Type: Spontaneous
  Country: US (occurrence: US)
  Receive Date: 20160229
  Receipt Date: 20160229
  Transmission Date: 20160526
  Serious: Yes (Hospitalization, Other)
  Sender: FDA-Public Use
  Company Number: US-ABBVIE-15P-163-1471399-00

PATIENT
  Sex: Male

DRUGS (1)
  1. ANDROGEL [Suspect]
     Active Substance: TESTOSTERONE
     Indication: PRODUCT USED FOR UNKNOWN INDICATION
     Route: 061
     Dates: start: 1997, end: 20100917

REACTIONS (6)
  - Pain [Unknown]
  - Pulmonary embolism [Unknown]
  - Injury [Unknown]
  - Emotional distress [Unknown]
  - Deep vein thrombosis [Unknown]
  - Anxiety [Unknown]

NARRATIVE: CASE EVENT DATE: 20090331
